FAERS Safety Report 11791979 (Version 4)
Quarter: 2016Q2

REPORT INFORMATION
  Report Type: Report from Study
  Country: US (occurrence: US)
  Receive Date: 20151201
  Receipt Date: 20160607
  Transmission Date: 20160815
  Serious: Yes (Hospitalization, Other)
  Sender: FDA-Public Use
  Company Number: US-ARIAD-2015US005792

PATIENT
  Age: 70 Year
  Weight: 73 kg

DRUGS (6)
  1. ICLUSIG [Suspect]
     Active Substance: PONATINIB
     Dosage: 45 MG, QD
     Route: 048
     Dates: start: 20150930, end: 20151116
  2. ICLUSIG [Suspect]
     Active Substance: PONATINIB
     Dosage: 30 MG, QD
     Route: 048
     Dates: start: 20150810, end: 20150930
  3. ICLUSIG [Suspect]
     Active Substance: PONATINIB
     Dosage: 30 MG, QD
     Route: 048
     Dates: start: 20151223, end: 20160210
  4. MORPHINE [Concomitant]
     Active Substance: MORPHINE
     Indication: PRODUCT USED FOR UNKNOWN INDICATION
  5. ICLUSIG [Suspect]
     Active Substance: PONATINIB
     Indication: CHRONIC MYELOID LEUKAEMIA
     Dosage: 45 MG, QD
     Route: 048
     Dates: start: 20150707, end: 20150722
  6. LASIX [Concomitant]
     Active Substance: FUROSEMIDE
     Indication: PRODUCT USED FOR UNKNOWN INDICATION
     Dosage: 140 MG, UNK

REACTIONS (19)
  - Rash [Unknown]
  - Cellulitis [Unknown]
  - Oedema peripheral [Unknown]
  - Thrombosis [Unknown]
  - Dyspnoea [Unknown]
  - Pneumonia [Unknown]
  - Cardiac failure congestive [Unknown]
  - Skin ulcer [Unknown]
  - Renal failure [Unknown]
  - Decreased appetite [Unknown]
  - Pain in extremity [Unknown]
  - Pulmonary embolism [Unknown]
  - Hyperkalaemia [Unknown]
  - Ichthyosis [Unknown]
  - Hypersomnia [Unknown]
  - Pulse absent [Unknown]
  - Skin exfoliation [Unknown]
  - Fluid overload [Unknown]
  - Erythema [Unknown]

NARRATIVE: CASE EVENT DATE: 201511
